FAERS Safety Report 19472162 (Version 1)
Quarter: 2021Q2

REPORT INFORMATION
  Report Type: Spontaneous
  Country: ES (occurrence: ES)
  Receive Date: 20210629
  Receipt Date: 20210629
  Transmission Date: 20210717
  Serious: Yes (Hospitalization)
  Sender: FDA-Public Use
  Company Number: ES-ACCORD-229765

PATIENT
  Age: 63 Year
  Sex: Male

DRUGS (2)
  1. SPIRONOLACTONE. [Interacting]
     Active Substance: SPIRONOLACTONE
     Indication: PORTAL HYPERTENSION
     Dosage: 200?100?0
     Route: 048
     Dates: start: 20191227
  2. FUROSEMIDE. [Suspect]
     Active Substance: FUROSEMIDE
     Indication: CIRRHOSIS ALCOHOLIC
     Dosage: 80MG / 24H
     Route: 048
     Dates: start: 20191227

REACTIONS (2)
  - Hyponatraemia [Recovered/Resolved]
  - Drug interaction [Unknown]

NARRATIVE: CASE EVENT DATE: 20200125
